FAERS Safety Report 7820172-6 (Version None)
Quarter: 2011Q4

REPORT INFORMATION
  Report Type: 
  Country: None (occurrence: None)
  Receive Date: 20111018
  Receipt Date: 20111011
  Transmission Date: 20120403
  Serious: Yes (Other)
  Sender: FDA-Public Use
  Company Number: PHHY2011CA90376

PATIENT
  Sex: Female

DRUGS (2)
  1. APO-METRONIDAZOLE [Concomitant]
     Indication: FUNGAL INFECTION
     Dosage: UNK UKN, BID
  2. GILENYA [Suspect]
     Indication: RELAPSING-REMITTING MULTIPLE SCLEROSIS
     Dosage: 0.5 MG, QD
     Route: 048
     Dates: start: 20110818

REACTIONS (5)
  - FATIGUE [None]
  - NEURALGIA [None]
  - FIBROMYALGIA [None]
  - EAR PAIN [None]
  - HEADACHE [None]
